FAERS Safety Report 20667537 (Version 1)
Quarter: 2022Q2

REPORT INFORMATION
  Report Type: Report from Study
  Country: TH (occurrence: TH)
  Receive Date: 20220404
  Receipt Date: 20220404
  Transmission Date: 20220720
  Serious: Yes (Death, Other)
  Sender: FDA-Public Use
  Company Number: TH-JNJFOC-20220357973

PATIENT
  Age: 79 Year
  Sex: Male

DRUGS (3)
  1. BORTEZOMIB [Suspect]
     Active Substance: BORTEZOMIB
     Indication: Plasma cell myeloma
     Dosage: UNK
     Route: 065
     Dates: start: 20210706, end: 20220224
  2. DARZALEX [Suspect]
     Active Substance: DARATUMUMAB
     Indication: Plasma cell myeloma
     Dosage: 100 MILLIGRAM
     Route: 065
     Dates: start: 20210706, end: 20220224
  3. DARZALEX [Suspect]
     Active Substance: DARATUMUMAB
     Dosage: 400 MILLIGRAM
     Route: 065
     Dates: start: 20210706, end: 20220224

REACTIONS (1)
  - Plasma cell myeloma [Fatal]
